FAERS Safety Report 20212388 (Version 2)
Quarter: 2022Q1

REPORT INFORMATION
  Report Type: Report from Study
  Country: FR (occurrence: FR)
  Receive Date: 20211221
  Receipt Date: 20220201
  Transmission Date: 20220423
  Serious: Yes (Hospitalization)
  Sender: FDA-Public Use
  Company Number: FR-NOVARTISPH-NVSC2021FR290653

PATIENT
  Sex: Male
  Weight: 58 kg

DRUGS (3)
  1. OMNITROPE [Suspect]
     Active Substance: SOMATROPIN
     Indication: Growth hormone deficiency
     Dosage: 2.2 MG
     Route: 058
     Dates: start: 202102
  2. SERETIDE MITE [Concomitant]
     Indication: Product used for unknown indication
     Dosage: UNK
     Route: 065
  3. AERIUS [Concomitant]
     Indication: Product used for unknown indication
     Dosage: UNK
     Route: 065

REACTIONS (11)
  - Migraine [Recovering/Resolving]
  - Pain [Recovering/Resolving]
  - Sinusitis [Unknown]
  - Malaise [Unknown]
  - Loss of consciousness [Unknown]
  - Headache [Unknown]
  - Tremor [Unknown]
  - Tension [Unknown]
  - Feeling hot [Unknown]
  - Speech disorder [Unknown]
  - Muscle spasms [Recovered/Resolved]

NARRATIVE: CASE EVENT DATE: 20211212
